FAERS Safety Report 24538211 (Version 2)
Quarter: 2024Q4

REPORT INFORMATION
  Report Type: Spontaneous
  Country: SG (occurrence: US)
  Receive Date: 20241023
  Receipt Date: 20241204
  Transmission Date: 20250115
  Serious: No
  Sender: ELI LILLY AND COMPANY
  Company Number: SG-ELI_LILLY_AND_COMPANY-US202410014445

PATIENT

DRUGS (1)
  1. MOUNJARO [Suspect]
     Active Substance: TIRZEPATIDE
     Indication: Type 2 diabetes mellitus
     Dosage: UNK UNK, UNKNOWN
     Route: 065

REACTIONS (2)
  - Blood creatinine increased [Recovered/Resolved]
  - Dehydration [Recovered/Resolved]
